FAERS Safety Report 23874012 (Version 3)
Quarter: 2024Q3

REPORT INFORMATION
  Report Type: Spontaneous
  Country: US (occurrence: US)
  Receive Date: 20240520
  Receipt Date: 20240701
  Transmission Date: 20241016
  Serious: Yes (Disabling, Other)
  Sender: APELLIS PHARMACEUTICALS
  Company Number: US-APELLIS-2024-APL-0000031

PATIENT

DRUGS (2)
  1. EMPAVELI [Suspect]
     Active Substance: PEGCETACOPLAN
     Indication: Paroxysmal nocturnal haemoglobinuria
     Dosage: SQ 2X/WEEK
     Route: 058
     Dates: start: 2019, end: 2024
  2. FABHALTA [Concomitant]
     Active Substance: IPTACOPAN HYDROCHLORIDE
     Indication: Product used for unknown indication
     Route: 048
     Dates: start: 2024

REACTIONS (5)
  - Scar [Not Recovered/Not Resolved]
  - Skin reaction [Not Recovered/Not Resolved]
  - Rash [Unknown]
  - Eyelid oedema [Not Recovered/Not Resolved]
  - Injection site reaction [Not Recovered/Not Resolved]
